FAERS Safety Report 16171303 (Version 2)
Quarter: 2019Q4

REPORT INFORMATION
  Report Type: Spontaneous
  Country: US (occurrence: US)
  Receive Date: 20190408
  Receipt Date: 20191008
  Transmission Date: 20200122
  Serious: Yes (Other)
  Sender: FDA-Public Use
  Company Number: US-LEXICON PHARMACEUTICALS, INC-19-1606-00397

PATIENT
  Sex: Female

DRUGS (13)
  1. TELOTRISTAT ETHYL [Suspect]
     Active Substance: TELOTRISTAT ETHYL
     Indication: CARCINOID SYNDROME
     Route: 048
     Dates: start: 20180508
  2. SOMATULINE [Concomitant]
     Active Substance: LANREOTIDE ACETATE
  3. POTASSIUM [Concomitant]
     Active Substance: POTASSIUM
  4. COENZYME Q10 [Concomitant]
     Active Substance: UBIDECARENONE
  5. VALSARTAN. [Concomitant]
     Active Substance: VALSARTAN
  6. TELOTRISTAT ETHYL [Suspect]
     Active Substance: TELOTRISTAT ETHYL
     Indication: CARCINOID TUMOUR
  7. MIRALAX [Concomitant]
     Active Substance: POLYETHYLENE GLYCOL 3350
  8. MORPHINE [Concomitant]
     Active Substance: MORPHINE
  9. LASIX [Concomitant]
     Active Substance: FUROSEMIDE
  10. NORCO [Concomitant]
     Active Substance: ACETAMINOPHEN\HYDROCODONE BITARTRATE
  11. CREON [Concomitant]
     Active Substance: PANCRELIPASE AMYLASE\PANCRELIPASE LIPASE\PANCRELIPASE PROTEASE
  12. HYOSYNE [Concomitant]
     Active Substance: HYOSCYAMINE SULFATE
  13. BENZONATATE. [Concomitant]
     Active Substance: BENZONATATE

REACTIONS (4)
  - Product dose omission [Unknown]
  - Oxygen therapy [Unknown]
  - Malaise [Unknown]
  - Constipation [Unknown]
